FAERS Safety Report 21326461 (Version 2)
Quarter: 2024Q2

REPORT INFORMATION
  Report Type: Spontaneous
  Country: US (occurrence: US)
  Receive Date: 20220913
  Receipt Date: 20240413
  Transmission Date: 20240715
  Serious: No
  Sender: FDA-Public Use
  Company Number: US-SA-SAC20220912001801

PATIENT
  Age: 19 Year
  Sex: Male

DRUGS (6)
  1. ALPROLIX [Suspect]
     Active Substance: EFTRENONACOG ALFA
     Indication: Factor IX deficiency
     Dosage: 5230-6276 UNITS, QW FOR PROPHY AND FOR MINOR BLEED
     Route: 042
     Dates: start: 202102
  2. ALPROLIX [Suspect]
     Active Substance: EFTRENONACOG ALFA
     Indication: Factor IX deficiency
     Dosage: 5230-6276 UNITS, QW FOR PROPHY AND FOR MINOR BLEED
     Route: 042
     Dates: start: 202102
  3. ALPROLIX [Suspect]
     Active Substance: EFTRENONACOG ALFA
     Dosage: 9414-10460 UNITS, QW FOR MAJOR BLEEDS
     Route: 042
     Dates: start: 202102
  4. ALPROLIX [Suspect]
     Active Substance: EFTRENONACOG ALFA
     Dosage: 9414-10460 UNITS, QW FOR MAJOR BLEEDS
     Route: 042
     Dates: start: 202102
  5. ALPROLIX [Suspect]
     Active Substance: EFTRENONACOG ALFA
     Dosage: 5650 IU, QW
     Route: 042
     Dates: start: 20220726
  6. ALPROLIX [Suspect]
     Active Substance: EFTRENONACOG ALFA
     Dosage: 5650 IU, QW
     Route: 042
     Dates: start: 20220726

REACTIONS (2)
  - Vision blurred [Unknown]
  - Vision blurred [Recovered/Resolved]

NARRATIVE: CASE EVENT DATE: 20220101
